FAERS Safety Report 11814593 (Version 1)
Quarter: 2015Q4

REPORT INFORMATION
  Report Type: Spontaneous
  Country: US (occurrence: US)
  Receive Date: 20151209
  Receipt Date: 20151209
  Transmission Date: 20160305
  Serious: Yes (Hospitalization)
  Sender: FDA-Public Use
  Company Number: US-B.I. PHARMACEUTICALS,INC./RIDGEFIELD-2015-BI-67598BP

PATIENT
  Age: 86 Year
  Sex: Female
  Weight: 49.9 kg

DRUGS (3)
  1. XELODA [Concomitant]
     Active Substance: CAPECITABINE
     Indication: PANCREATIC CARCINOMA
     Dosage: 3000 MG
     Route: 048
     Dates: start: 20121024, end: 20121226
  2. PRADAXA [Suspect]
     Active Substance: DABIGATRAN ETEXILATE MESYLATE
     Indication: PULMONARY EMBOLISM
     Dosage: 75 MG
     Route: 048
     Dates: start: 20121207, end: 20121227
  3. XELODA [Concomitant]
     Active Substance: CAPECITABINE
     Dosage: 3000 MG
     Route: 048
     Dates: start: 20130103

REACTIONS (2)
  - Anaemia [Recovered/Resolved]
  - Upper gastrointestinal haemorrhage [Unknown]

NARRATIVE: CASE EVENT DATE: 20121227
